FAERS Safety Report 13307329 (Version 2)
Quarter: 2018Q1

REPORT INFORMATION
  Report Type: Report from Study
  Country: FR (occurrence: FR)
  Receive Date: 20170308
  Receipt Date: 20180110
  Transmission Date: 20180508
  Serious: Yes (Hospitalization, Other)
  Sender: FDA-Public Use
  Company Number: FR-PFIZER INC-2017096786

PATIENT
  Age: 39 Year
  Sex: Male
  Weight: 71 kg

DRUGS (21)
  1. METHOTREXATE SODIUM. [Suspect]
     Active Substance: METHOTREXATE SODIUM
     Dosage: 20 MG, WEEKLY
     Route: 048
     Dates: start: 20151210, end: 20160825
  2. REMICADE [Suspect]
     Active Substance: INFLIXIMAB
     Dosage: 640 MG, EVERY 8 WEEKS
     Route: 042
     Dates: start: 20151030, end: 20151211
  3. REMICADE [Suspect]
     Active Substance: INFLIXIMAB
     Dosage: 700 MG, EVERY 6 WEEKS
     Route: 042
     Dates: start: 20151211
  4. AMPHOTERICIN B. [Concomitant]
     Active Substance: AMPHOTERICIN B
     Dosage: UNK
     Dates: start: 20161202
  5. NO SUBJECT DRUG [Suspect]
     Active Substance: UNSPECIFIED INGREDIENT
     Dosage: NO DOSE GIVEN
  6. METHOTREXATE SODIUM. [Suspect]
     Active Substance: METHOTREXATE SODIUM
     Dosage: 15 MG, WEEKLY
     Route: 048
     Dates: start: 20161202, end: 20170308
  7. REMSIMA [Concomitant]
     Active Substance: INFLIXIMAB
     Dosage: 800 MG, EVERY 8 WEEKS
     Route: 042
     Dates: start: 201601, end: 20160711
  8. ATORVASTATIN CALCIUM TRIHYDRATE [Concomitant]
     Active Substance: ATORVASTATIN CALCIUM
     Dosage: UNK
  9. CLARELUX [Concomitant]
     Active Substance: CLOBETASOL PROPIONATE
     Dosage: UNK
     Dates: start: 20151229
  10. CLOBETASOL PROPIONATE. [Concomitant]
     Active Substance: CLOBETASOL PROPIONATE
     Dosage: UNK
  11. DICLOFENAC SODIUM. [Concomitant]
     Active Substance: DICLOFENAC SODIUM
     Dosage: UNK
     Dates: start: 20151104
  12. FENOFIBRATE. [Concomitant]
     Active Substance: FENOFIBRATE
     Dosage: UNK
     Dates: start: 201606
  13. COSENTYX [Suspect]
     Active Substance: SECUKINUMAB
     Dosage: 300 MG, EVERY 4 WEEKS
     Route: 058
     Dates: start: 201607, end: 201612
  14. DUOFILM [Concomitant]
     Dosage: UNK
     Dates: start: 20150226
  15. METHOTREXATE SODIUM. [Suspect]
     Active Substance: METHOTREXATE SODIUM
     Dosage: 10 MG, WEEKLY
     Route: 048
     Dates: start: 20160825, end: 20161202
  16. REMICADE [Suspect]
     Active Substance: INFLIXIMAB
     Indication: PSORIASIS
     Dosage: 400 MG, EVERY 8 WEEKS
     Route: 042
     Dates: start: 20150112, end: 20151030
  17. COSENTYX [Suspect]
     Active Substance: SECUKINUMAB
     Dosage: 300 MG, EVERY 4 WEEKS
     Route: 058
     Dates: start: 20170106, end: 20170106
  18. METHOTREXATE SODIUM. [Suspect]
     Active Substance: METHOTREXATE SODIUM
     Indication: PSORIASIS
     Dosage: 15 MG, WEEKLY
     Route: 048
     Dates: start: 20151103, end: 20151210
  19. BIPROFENID [Concomitant]
     Active Substance: KETOPROFEN
     Dosage: UNK
     Dates: start: 20141224
  20. CLOBETASOL [Concomitant]
     Active Substance: CLOBETASOL
     Dosage: UNK
  21. DUPHALAC [Concomitant]
     Active Substance: LACTULOSE
     Dosage: UNK
     Dates: start: 20151104

REACTIONS (6)
  - Cardiovascular disorder [Not Recovered/Not Resolved]
  - Tinea versicolour [Not Recovered/Not Resolved]
  - Intestinal transit time increased [Recovering/Resolving]
  - Condition aggravated [Not Recovered/Not Resolved]
  - Candida infection [Not Recovered/Not Resolved]
  - Weight decreased [Recovering/Resolving]

NARRATIVE: CASE EVENT DATE: 2016
